FAERS Safety Report 19489370 (Version 1)
Quarter: 2021Q3

REPORT INFORMATION
  Report Type: Spontaneous
  Country: DE (occurrence: DE)
  Receive Date: 20210703
  Receipt Date: 20210703
  Transmission Date: 20211014
  Serious: Yes (Hospitalization)
  Sender: FDA-Public Use
  Company Number: DE-ACCORD-230407

PATIENT
  Age: 78 Year
  Sex: Male

DRUGS (21)
  1. METAMIZOLE SODIUM [Concomitant]
     Active Substance: METAMIZOLE SODIUM
     Dosage: 500 MG, BEI BEDARF, TABLETTEN
     Route: 048
  2. TAMSULOSIN/TAMSULOSIN HYDROCHLORIDE [Concomitant]
     Active Substance: TAMSULOSIN HYDROCHLORIDE
     Dosage: 0.4 MG, 1?0?0?0, RETARD?TABLETTEN
     Route: 048
  3. AMBROXOL [Concomitant]
     Active Substance: AMBROXOL
     Dosage: 9 MG, 1?0?0?0, TROPFEN
     Route: 048
  4. IVABRADINE/IVABRADINE HYDROCHLORIDE [Concomitant]
     Active Substance: IVABRADINE HYDROCHLORIDE
     Dosage: 2.5 MG, 1?0?1?0, TABLETTEN
     Route: 048
  5. ATORVASTATIN [Concomitant]
     Active Substance: ATORVASTATIN
     Dosage: 40 MG, 0?0?0?2, TABLETTEN
     Route: 048
  6. DIMENHYDRINATE. [Concomitant]
     Active Substance: DIMENHYDRINATE
     Dosage: 150 MG, BEI BEDARF, SUPPOSITORIEN
     Route: 054
  7. NIFEDIPINE. [Concomitant]
     Active Substance: NIFEDIPINE
     Dosage: 20 TROPFEN, BEI BEDARF, TROPFEN
     Route: 048
  8. PREDNISOLONE. [Suspect]
     Active Substance: PREDNISOLONE
     Indication: PRODUCT USED FOR UNKNOWN INDICATION
     Dosage: 5 MG, 1?0?0?0, TABLETTEN
     Route: 048
  9. AMLODIPINE [Concomitant]
     Active Substance: AMLODIPINE BESYLATE
     Dosage: 5 MG, 0.5?0?0?0, TABLETTEN
     Route: 048
  10. CANDESARTAN. [Concomitant]
     Active Substance: CANDESARTAN
     Dosage: 16 MG, 1?0?1?0, TABLETTEN
     Route: 048
  11. THYME EXTRACT [Concomitant]
     Dosage: 400 /200 MG, IF NECESSARY 35GTT, DROPS
     Route: 048
  12. QUETIAPINE/QUETIAPINE FUMARATE [Concomitant]
     Active Substance: QUETIAPINE FUMARATE
     Dosage: 25 MG, BEI BEDARF, TABLETTEN
     Route: 048
  13. TORASEMIDE [Concomitant]
     Active Substance: TORSEMIDE
     Dosage: 5 MG, 1?0?0?0, TABLETTEN
     Route: 048
  14. DEKRISTOL [Concomitant]
     Active Substance: CHOLECALCIFEROL
     Dosage: 2000 IE, 1?0?0?0, KAPSELN
     Route: 048
  15. APIXABAN [Suspect]
     Active Substance: APIXABAN
     Indication: PRODUCT USED FOR UNKNOWN INDICATION
     Dosage: 5 MG, 1?0?1?0, TABLETS
     Route: 048
  16. MOVICOL [Concomitant]
     Active Substance: POLYETHYLENE GLYCOL 3350\POTASSIUM CHLORIDE\SODIUM BICARBONATE\SODIUM CHLORIDE
     Dosage: 1?0?0?0, PULVER
     Route: 048
  17. ESOMEPRAZOLE. [Concomitant]
     Active Substance: ESOMEPRAZOLE MAGNESIUM
     Dosage: 40 MG, 1?0?0?0, TABLETTEN
     Route: 048
  18. LORAZEPAM. [Concomitant]
     Active Substance: LORAZEPAM
     Dosage: 0.5 MG, BEI BEDARF, SCHMELZTABLETTEN
     Route: 048
  19. OLODATEROL HYDROCHLORIDE [Concomitant]
     Active Substance: OLODATEROL HYDROCHLORIDE
     Dosage: 2.5 /2.5 UG, 2?0?0?0, METERED DOSE INHALER
     Route: 048
  20. DEKRISTOL [Concomitant]
     Active Substance: CHOLECALCIFEROL
     Dosage: 1 HUB, BEI BEDARF, DOSIERAEROSOL
     Route: 048
  21. CYANOCOBALAMIN. [Concomitant]
     Active Substance: CYANOCOBALAMIN
     Dosage: 1 MG / ML, 1?0?0?0, SOLUTION FOR INJECTION / INFUSION
     Route: 058

REACTIONS (4)
  - General physical health deterioration [Unknown]
  - Respiration abnormal [Unknown]
  - Haematochezia [Unknown]
  - Haematemesis [Unknown]
